FAERS Safety Report 8612198-X (Version None)
Quarter: 2012Q3

REPORT INFORMATION
  Report Type: 
  Country: None (occurrence: None)
  Receive Date: 20120822
  Receipt Date: 20120815
  Transmission Date: 20120928
  Serious: Yes (Other)
  Sender: FDA-Public Use
  Company Number: DE-PFIZER INC-2012197156

PATIENT
  Age: 53 Year
  Sex: Male

DRUGS (6)
  1. LYRICA [Suspect]
     Dosage: 300 MG, 1X/DAY
  2. MIRTAZAPINE [Concomitant]
     Dosage: 30 MG, UNK
  3. NEBIVOLOL [Concomitant]
     Dosage: 5 MG, UNK
  4. LYRICA [Suspect]
     Indication: DEPRESSION
     Dosage: 100 MG, 1X/DAY
     Dates: start: 20110301
  5. FLUTICASONE [Concomitant]
     Dosage: UNK
  6. DULOXETINE [Concomitant]
     Dosage: 60 MG, UNK

REACTIONS (1)
  - LENTICULAR OPACITIES [None]
